FAERS Safety Report 18572057 (Version 4)
Quarter: 2021Q3

REPORT INFORMATION
  Report Type: Spontaneous
  Country: US (occurrence: US)
  Receive Date: 20201203
  Receipt Date: 20210827
  Transmission Date: 20211014
  Serious: Yes (Other)
  Sender: FDA-Public Use
  Company Number: US-SA-2020SA345174

PATIENT
  Age: 49 Year
  Sex: Male

DRUGS (19)
  1. NAPROSYN [Concomitant]
     Active Substance: NAPROXEN
     Indication: TENDON DISORDER
     Dosage: TABLET, 500 MG, 1 TABLET AS NEEDED, ORALLY, EVERY 12 HRS PRN, 1 MOS, 60. STOP DATE 06/26/2013
     Route: 048
  2. PREDNISONE. [Concomitant]
     Active Substance: PREDNISONE
     Indication: MUSCLE STRAIN
     Dosage: TABLET, 10 MG, AS DIRECTED, ORALLY, AS DIRECTED, 6 DAYS, 6
     Route: 048
  3. DIOVAN [Concomitant]
     Active Substance: VALSARTAN
     Indication: HYPERTENSION
     Dosage: 80 MG, 1, ORALLY, ONCE A DAY, 30 DAY(S), 30, REFILLS 2
     Route: 048
  4. MOBIC [Concomitant]
     Active Substance: MELOXICAM
     Indication: ARTHRALGIA
     Dosage: TABLET, 15 MG, 1 TABLET, ORALLY, ONCE A DAY, 30 DAY(S), 30
     Route: 048
  5. COZAAR [Concomitant]
     Active Substance: LOSARTAN POTASSIUM
     Indication: HYPERTENSION
     Dosage: TABLET, 50 MG, 1 TABLET, ORALLY, ONCE A DAY, 90 DAYS, 90, REFILLS 0
     Route: 048
  6. METFORMIN [Concomitant]
     Active Substance: METFORMIN HYDROCHLORIDE
     Indication: HYPERINSULINAEMIA
     Dosage: TABLET, 500 MG, 1 TABLET WITH MEALS, ORALLY, TWICE A DAY, 90 DAY(S), 180, REFILLS 0
     Route: 048
  7. ZANTAC [Suspect]
     Active Substance: RANITIDINE HYDROCHLORIDE
     Dosage: 150 MG
     Route: 048
     Dates: end: 2018
  8. CRESTOR [Concomitant]
     Active Substance: ROSUVASTATIN CALCIUM
     Indication: HYPERLIPIDAEMIA
     Dosage: 20 MG, 1 TABLET, ORALLY, ONCE A DAY, 30 DAY(S), 30, REFILLS 2
     Route: 048
  9. FENOFIBRATE. [Concomitant]
     Active Substance: FENOFIBRATE
     Indication: HYPERLIPIDAEMIA
     Dosage: TABLET, 145 MG, 1 TABLET, ORALLY, ONCE A DAY, 90 DAY(S), 90, REFILLS 0
     Route: 048
  10. PROAIR HFA [Concomitant]
     Active Substance: ALBUTEROL SULFATE
     Indication: OTITIS MEDIA
  11. VIMOVO [Concomitant]
     Active Substance: ESOMEPRAZOLE MAGNESIUM\NAPROXEN
     Indication: MUSCLE STRAIN
     Dosage: TABLET DELAYED RELEASE, 500?20 MG, 1 TABLET BEFORE MEALS, ORALLY, TWICE A DAY PRN, 30 DAY(S), 60
     Route: 048
  12. NASONEX [Concomitant]
     Active Substance: MOMETASONE FUROATE
     Indication: RHINITIS
     Dosage: SUSPENSION, 50 MCG/ACT, 2 SPRAYS IN EACH NOSTRIL, NASALLY, ONCE A DAY, 30 DAY(S), 1
     Route: 045
  13. TRICOR [ADENOSINE] [Concomitant]
     Active Substance: ADENOSINE
     Indication: HYPERLIPIDAEMIA
     Dosage: TABLET, 145 MG, 1 TABLET, ORALLY, ONCE A DAY, 90 DAY(S), 90, REFILLS 0
     Route: 048
  14. FLUTICASONE PROPIONATE. [Concomitant]
     Active Substance: FLUTICASONE PROPIONATE
  15. IBUPROFEN. [Concomitant]
     Active Substance: IBUPROFEN
     Dosage: 1 TABLET AS NEEDED EVERY 6 HRS
  16. CEFTRIAXONE. [Concomitant]
     Active Substance: CEFTRIAXONE
     Indication: RHINITIS
  17. AUGMENTIN [Concomitant]
     Active Substance: AMOXICILLIN\CLAVULANATE POTASSIUM
     Indication: OTITIS MEDIA
     Dosage: 875?125 MG EVERY 12 HRS, 10 DAY(S), 20
     Route: 048
  18. MUCINEX [Concomitant]
     Active Substance: GUAIFENESIN
     Indication: OTITIS MEDIA
  19. LOSARTAN POTASSIUM. [Concomitant]
     Active Substance: LOSARTAN POTASSIUM
     Indication: HYPERTENSION
     Dosage: TABLET, 50 MG, 1 TABLET, ORALLY, ONCE A DAY, 90 DAY(S), 90, REFILLS 0
     Route: 048

REACTIONS (20)
  - Neck dissection [Unknown]
  - Breast cancer male [Unknown]
  - Injury [Unknown]
  - Anxiety [Unknown]
  - Snoring [Unknown]
  - Tendon disorder [Unknown]
  - Hyperlipidaemia [Unknown]
  - Bronchitis [Unknown]
  - Back pain [Unknown]
  - Hyperinsulinaemia [Unknown]
  - Hypertension [Unknown]
  - Glucose tolerance impaired [Unknown]
  - Rhinitis [Unknown]
  - Lip and/or oral cavity cancer [Unknown]
  - Otitis media [Unknown]
  - Arthralgia [Unknown]
  - Lymphadenopathy [Unknown]
  - Glossectomy [Unknown]
  - Tongue disorder [Unknown]
  - Otitis externa [Unknown]

NARRATIVE: CASE EVENT DATE: 2020
